FAERS Safety Report 6518716-X (Version None)
Quarter: 2009Q4

REPORT INFORMATION
  Report Type: 
  Country: None (occurrence: None)
  Receive Date: 20091228
  Receipt Date: 20091223
  Transmission Date: 20100525
  Serious: Yes (Death, Hospitalization)
  Sender: FDA-Public Use
  Company Number: PHEH2009US16218

PATIENT
  Sex: Female
  Weight: 72.562 kg

DRUGS (1)
  1. AFINITOR [Suspect]
     Indication: RENAL CELL CARCINOMA
     Dosage: 10 MG, QD
     Route: 048
     Dates: start: 20090925, end: 20091110

REACTIONS (3)
  - DEATH [None]
  - DYSPNOEA [None]
  - PNEUMONITIS [None]
